FAERS Safety Report 19908396 (Version 1)
Quarter: 2021Q4

REPORT INFORMATION
  Report Type: Spontaneous
  Country: US (occurrence: US)
  Receive Date: 20211002
  Receipt Date: 20211002
  Transmission Date: 20220303
  Serious: No
  Sender: FDA-Public Use
  Company Number: US-SANOFI-00790583

PATIENT
  Sex: Female

DRUGS (2)
  1. MULTAQ [Suspect]
     Active Substance: DRONEDARONE
     Indication: Atrial fibrillation
  2. ATORVASTATIN CALCIUM [Suspect]
     Active Substance: ATORVASTATIN CALCIUM
     Indication: Atrial fibrillation

REACTIONS (7)
  - Respiratory disorder [Recovered/Resolved]
  - Urticaria [Unknown]
  - Malaise [Unknown]
  - Abdominal pain [Unknown]
  - Abdominal discomfort [Unknown]
  - Rash [Unknown]
  - Pruritus [Unknown]
